FAERS Safety Report 21670856 (Version 1)
Quarter: 2022Q4

REPORT INFORMATION
  Report Type: Spontaneous
  Country: CN (occurrence: CN)
  Receive Date: 20221202
  Receipt Date: 20221202
  Transmission Date: 20230113
  Serious: Yes (Other)
  Sender: FDA-Public Use
  Company Number: None

PATIENT
  Age: 86 Year
  Sex: Male
  Weight: 70 kg

DRUGS (2)
  1. MANNITOL [Suspect]
     Active Substance: MANNITOL
     Indication: Reduction of increased intracranial pressure
     Dosage: 125 ML, TWICE DAILY
     Route: 041
     Dates: start: 20221027, end: 20221029
  2. MANNITOL [Suspect]
     Active Substance: MANNITOL
     Dosage: 125 ML, THREE TIMES DAILY
     Route: 041
     Dates: start: 20221029, end: 20221031

REACTIONS (1)
  - Blood creatinine increased [Recovering/Resolving]

NARRATIVE: CASE EVENT DATE: 20221031
